FAERS Safety Report 17044289 (Version 1)
Quarter: 2019Q4

REPORT INFORMATION
  Report Type: Spontaneous
  Country: US (occurrence: US)
  Receive Date: 20191017
  Receipt Date: 20191017
  Transmission Date: 20200122
  Serious: Yes (Disabling)
  Sender: FDA-Public Use
  Company Number: None

PATIENT
  Age: 38 Year
  Sex: Female
  Weight: 76.2 kg

DRUGS (3)
  1. MULTIVITAMIN [Concomitant]
     Active Substance: VITAMINS
  2. SULFAMETHOXAZOLE-TMP DS TAB #14 [Suspect]
     Active Substance: SULFAMETHOXAZOLE\TRIMETHOPRIM
     Indication: IMPETIGO
     Dosage: ?          QUANTITY:1 DF DOSAGE FORM; FOR 7 DAYS?
     Route: 048
     Dates: end: 20190906
  3. VITAMIN C [Concomitant]
     Active Substance: ASCORBIC ACID

REACTIONS (7)
  - Pyrexia [None]
  - Arthralgia [None]
  - Stomatitis [None]
  - Musculoskeletal pain [None]
  - Oropharyngeal pain [None]
  - Condition aggravated [None]
  - Toothache [None]

NARRATIVE: CASE EVENT DATE: 20190906
